FAERS Safety Report 4515119-4 (Version None)
Quarter: 2004Q4

REPORT INFORMATION
  Report Type: 
  Country: None (occurrence: None)
  Receive Date: 20041129
  Receipt Date: 20041129
  Transmission Date: 20050328
  Serious: Yes (Death, Life-Threatening, Hospitalization)
  Sender: FDA-Public Use
  Company Number: None

PATIENT
  Age: 33 Year
  Sex: Male
  Weight: 120 kg

DRUGS (16)
  1. CYTARABINE [Suspect]
     Indication: ACUTE MYELOID LEUKAEMIA
     Dosage: 3 GM/M2 Q 12 HR IV
     Route: 042
     Dates: start: 20040922, end: 20040928
  2. NEUPOGEN [Suspect]
     Indication: ACUTE MYELOID LEUKAEMIA
     Dosage: 480 MCG SQ DAILY
     Route: 058
     Dates: start: 20040929, end: 20041101
  3. DIFLUCAN [Concomitant]
  4. VALTREX [Concomitant]
  5. ATIVAN [Concomitant]
  6. ZOFRAN [Concomitant]
  7. COUMADIN [Concomitant]
  8. PROTONIX [Concomitant]
  9. KCL TAB [Concomitant]
  10. EFFEXOR [Concomitant]
  11. COLACE [Concomitant]
  12. COMPAZINE [Concomitant]
  13. TYLENOL (CAPLET) [Concomitant]
  14. ALLOPURINOL [Concomitant]
  15. TOPRAL [Concomitant]
  16. NEUPOGEN [Concomitant]

REACTIONS (38)
  - ACUTE RESPIRATORY DISTRESS SYNDROME [None]
  - ANOREXIA [None]
  - APLASIA [None]
  - ASTHENIA [None]
  - BACTERIAL SEPSIS [None]
  - BLISTER [None]
  - BLOOD ELECTROLYTES ABNORMAL [None]
  - CARDIOVASCULAR DISORDER [None]
  - COAGULOPATHY [None]
  - COUGH [None]
  - DEPRESSED LEVEL OF CONSCIOUSNESS [None]
  - DISEASE RECURRENCE [None]
  - FATIGUE [None]
  - FEBRILE NEUTROPENIA [None]
  - FUNGAL INFECTION [None]
  - GANGRENE [None]
  - HAEMODIALYSIS [None]
  - HAEMOGLOBIN DECREASED [None]
  - HERPES ZOSTER [None]
  - HYPOPERFUSION [None]
  - INFECTION [None]
  - ISCHAEMIC HEPATITIS [None]
  - LACTIC ACIDOSIS [None]
  - METABOLIC ACIDOSIS [None]
  - MULTI-ORGAN FAILURE [None]
  - NECROSIS [None]
  - OESOPHAGEAL ACHALASIA [None]
  - PROCTALGIA [None]
  - RECTAL ABSCESS [None]
  - RENAL FAILURE ACUTE [None]
  - RESPIRATORY ACIDOSIS [None]
  - RESPIRATORY DISORDER [None]
  - RESPIRATORY FAILURE [None]
  - SEPTIC SHOCK [None]
  - TENDERNESS [None]
  - TREATMENT NONCOMPLIANCE [None]
  - ULCER [None]
  - VOMITING [None]
